FAERS Safety Report 10175903 (Version 5)
Quarter: 2014Q3

REPORT INFORMATION
  Report Type: Report from Study
  Country: CA (occurrence: CA)
  Receive Date: 20140516
  Receipt Date: 20140918
  Transmission Date: 20150326
  Serious: Yes (Other)
  Sender: FDA-Public Use
  Company Number: PHHY2012CA103084

PATIENT
  Age: 61 Year
  Sex: Female

DRUGS (1)
  1. SANDOSTATIN LAR DEPOT [Suspect]
     Active Substance: OCTREOTIDE ACETATE
     Indication: NEUROENDOCRINE TUMOUR
     Dosage: 30 MG, EVERY 4 WEEKS
     Route: 030
     Dates: start: 20120810

REACTIONS (7)
  - Pain [Unknown]
  - Cough [Unknown]
  - Blood pressure systolic increased [Unknown]
  - Haemoptysis [Unknown]
  - Blood pressure increased [Unknown]
  - Muscle strain [Unknown]
  - Alopecia [Unknown]

NARRATIVE: CASE EVENT DATE: 201208
